FAERS Safety Report 5006797-4 (Version None)
Quarter: 2006Q2

REPORT INFORMATION
  Report Type: 
  Country: None (occurrence: None)
  Receive Date: 20060519
  Receipt Date: 20060407
  Transmission Date: 20061013
  Serious: Yes (Other)
  Sender: FDA-Public Use
  Company Number: PHEH2006US04636

PATIENT
  Age: 48 Year
  Sex: Female
  Weight: 86.167 kg

DRUGS (3)
  1. TOPROL-XL [Concomitant]
     Indication: HYPERTENSION
  2. ZANTAC [Concomitant]
     Indication: REFLUX OESOPHAGITIS
  3. DIOVAN [Suspect]
     Indication: HYPERTENSION
     Dosage: 80 MG, QD
     Route: 048
     Dates: start: 20050801

REACTIONS (6)
  - ANXIETY [None]
  - CONDITION AGGRAVATED [None]
  - PALPITATIONS [None]
  - PANIC ATTACK [None]
  - TREATMENT NONCOMPLIANCE [None]
  - VENTRICULAR EXTRASYSTOLES [None]
